FAERS Safety Report 15462525 (Version 4)
Quarter: 2020Q1

REPORT INFORMATION
  Report Type: Spontaneous
  Country: US (occurrence: US)
  Receive Date: 20181004
  Receipt Date: 20200317
  Transmission Date: 20200409
  Serious: Yes (Hospitalization)
  Sender: FDA-Public Use
  Company Number: US-BIOGEN-2018BI00634933

PATIENT
  Age: 50 Year
  Sex: Female

DRUGS (3)
  1. BACLOFEN. [Concomitant]
     Active Substance: BACLOFEN
     Indication: MUSCLE SPASTICITY
     Route: 050
  2. TYSABRI [Suspect]
     Active Substance: NATALIZUMAB
     Route: 050
     Dates: start: 20181025
  3. TYSABRI [Suspect]
     Active Substance: NATALIZUMAB
     Indication: RELAPSING-REMITTING MULTIPLE SCLEROSIS
     Route: 050
     Dates: start: 20160321

REACTIONS (8)
  - Compartment syndrome [Recovered/Resolved]
  - Fatigue [Recovered/Resolved]
  - Post procedural infection [Unknown]
  - Feeling abnormal [Recovered/Resolved]
  - Extremity necrosis [Unknown]
  - Impaired healing [Recovered/Resolved]
  - Musculoskeletal disorder [Recovered/Resolved]
  - Muscle spasms [Recovered/Resolved]

NARRATIVE: CASE EVENT DATE: 20180205
